FAERS Safety Report 7356099-6 (Version None)
Quarter: 2011Q1

REPORT INFORMATION
  Report Type: 
  Country: None (occurrence: None)
  Receive Date: 20110316
  Receipt Date: 20110214
  Transmission Date: 20110831
  Serious: Yes (Other)
  Sender: FDA-Public Use
  Company Number: US-BAYER-201039705NA

PATIENT
  Sex: Female
  Weight: 58.957 kg

DRUGS (2)
  1. BIAXIN XL [Concomitant]
     Indication: RESPIRATORY DISORDER
     Dosage: 500 MG, UNK
     Dates: start: 20061006
  2. YASMIN [Suspect]
     Indication: PRODUCT USED FOR UNKNOWN INDICATION
     Dosage: UNK UNK, UNK
     Route: 048
     Dates: start: 20030217

REACTIONS (2)
  - ABDOMINAL PAIN [None]
  - BILIARY DYSKINESIA [None]
